FAERS Safety Report 23827676 (Version 1)
Quarter: 2024Q2

REPORT INFORMATION
  Report Type: Spontaneous
  Country: US (occurrence: None)
  Receive Date: 20240506
  Receipt Date: 20240506
  Transmission Date: 20240716
  Serious: Yes (Other)
  Sender: FDA-Public Use
  Company Number: None

PATIENT
  Age: 65 Year
  Sex: Female

DRUGS (1)
  1. ZOLEDRONIC ACID [Suspect]
     Active Substance: ZOLEDRONIC ACID
     Dosage: OTHER FREQUENCY : ONCE YEARLY;?
     Route: 042

REACTIONS (3)
  - Pain [None]
  - Screaming [None]
  - Nonspecific reaction [None]

NARRATIVE: CASE EVENT DATE: 20240429
